FAERS Safety Report 19265800 (Version 1)
Quarter: 2021Q2

REPORT INFORMATION
  Report Type: Spontaneous
  Country: US (occurrence: US)
  Receive Date: 20210517
  Receipt Date: 20210517
  Transmission Date: 20210717
  Serious: No
  Sender: FDA-Public Use
  Company Number: US-MYLANLABS-2021M1027423

PATIENT
  Sex: Female

DRUGS (1)
  1. NITROGLYCERIN TRANSDERMAL DELIVERY SYSTEM [Suspect]
     Active Substance: NITROGLYCERIN
     Indication: PRODUCT USED FOR UNKNOWN INDICATION
     Dosage: 0.2 MILLIGRAM, BID
     Route: 062
     Dates: start: 20210506

REACTIONS (1)
  - Incorrect product administration duration [Not Recovered/Not Resolved]

NARRATIVE: CASE EVENT DATE: 20210506
